FAERS Safety Report 5283032-3 (Version None)
Quarter: 2007Q2

REPORT INFORMATION
  Report Type: 
  Country: None (occurrence: None)
  Receive Date: 20070402
  Receipt Date: 20070328
  Transmission Date: 20071010
  Serious: Yes (Life-Threatening, Hospitalization)
  Sender: FDA-Public Use
  Company Number: PHRM2007FR01152

PATIENT
  Age: 74 Year
  Sex: Female

DRUGS (5)
  1. VOLTAREN [Suspect]
     Indication: BACK PAIN
     Dosage: 150 MG, ONCE/SINGLE
     Route: 030
     Dates: start: 20070202, end: 20070202
  2. MODURETIC 5-50 [Concomitant]
     Route: 048
  3. DIFFU K [Concomitant]
     Route: 048
  4. SOTALOL HYDROCHLORIDE [Concomitant]
     Dosage: 80 MG, BID
     Route: 048
  5. OMEPRAZOLE [Concomitant]
     Dosage: 20 MG, QD
     Route: 048

REACTIONS (4)
  - CARDIAC MASSAGE [None]
  - CARDIO-RESPIRATORY ARREST [None]
  - FIBRIN D DIMER INCREASED [None]
  - LOSS OF CONSCIOUSNESS [None]
